FAERS Safety Report 4816380-9 (Version None)
Quarter: 2005Q4

REPORT INFORMATION
  Report Type: 
  Country: None (occurrence: None)
  Receive Date: 20051028
  Receipt Date: 20051017
  Transmission Date: 20060501
  Serious: Yes (Other)
  Sender: FDA-Public Use
  Company Number: 2005144049

PATIENT
  Age: 39 Year
  Sex: Male

DRUGS (7)
  1. AZITHROMYCIN [Suspect]
     Indication: ILL-DEFINED DISORDER
     Dosage: 500 MG, ORAL
     Route: 048
     Dates: start: 20051012, end: 20051013
  2. CEFDINIR [Concomitant]
  3. LOXONIN (LOXOPROFEN SODIUM) [Concomitant]
  4. SELBEX (TEPRENONE) [Concomitant]
  5. PELEX (CAFFEINE, CHLORPHENAMINE MALEATE, PARACETAMOL, SALICYLAMIDE) [Concomitant]
  6. GASMOTIN (MOSAPRIDE CITRATE) [Concomitant]
  7. FAMOTIDINE [Concomitant]

REACTIONS (3)
  - FALL [None]
  - HEAD INJURY [None]
  - LOSS OF CONSCIOUSNESS [None]
